FAERS Safety Report 6438640-0 (Version None)
Quarter: 2009Q4

REPORT INFORMATION
  Report Type: 
  Country: None (occurrence: None)
  Receive Date: 20091110
  Receipt Date: 20091026
  Transmission Date: 20100525
  Serious: Yes (Hospitalization)
  Sender: FDA-Public Use
  Company Number: 2009AC000195

PATIENT
  Age: 71 Year
  Sex: Male

DRUGS (31)
  1. DIGOXIN [Suspect]
     Indication: CARDIAC DISORDER
     Dosage: 0.125 MG; QD ;PO
     Route: 048
  2. FUROSEMIDE [Concomitant]
  3. FLUTICASONE [Concomitant]
  4. VERAPAMIL [Concomitant]
  5. OMEPRAZOLE [Concomitant]
  6. INSULIN [Concomitant]
  7. MULTI-VITAMIN [Concomitant]
  8. AMITRIPTYLINE [Concomitant]
  9. ENALAPRIL MALEATE [Concomitant]
  10. WARFARIN SODIUM [Concomitant]
  11. LOVASTATIN [Concomitant]
  12. NOVOLOG [Concomitant]
  13. LEVEMIR [Concomitant]
  14. BISOPROLOL [Concomitant]
  15. CARTIA XT [Concomitant]
  16. FIBER [Concomitant]
  17. FLOMAX [Concomitant]
  18. HYDROCHLOROTHIAZIDE [Concomitant]
  19. HUMALOG [Concomitant]
  20. POTASSIUM CHLORIDE [Concomitant]
  21. PRILOSEC [Concomitant]
  22. INSULIN [Concomitant]
  23. OMEPRAZOLE [Concomitant]
  24. MULTI-VITAMIN [Concomitant]
  25. ASPIRIN [Concomitant]
  26. ENALAPRIL MALEATE [Concomitant]
  27. POTASSIUM CHLORIDE [Concomitant]
  28. LASIX [Concomitant]
  29. CARDIZEM [Concomitant]
  30. METOPROLOL TARTRATE [Concomitant]
  31. COUMADIN [Concomitant]

REACTIONS (29)
  - ABDOMINAL HERNIA [None]
  - ADRENAL ADENOMA [None]
  - AORTIC ANEURYSM [None]
  - ARTHRALGIA [None]
  - ATRIAL FIBRILLATION [None]
  - BLOOD GLUCOSE DECREASED [None]
  - BLOOD GLUCOSE INCREASED [None]
  - BRADYCARDIA [None]
  - BUNDLE BRANCH BLOCK RIGHT [None]
  - CARDIAC FAILURE [None]
  - CARDIAC FAILURE CONGESTIVE [None]
  - CARDIOVASCULAR DISORDER [None]
  - CELLULITIS [None]
  - CHRONIC OBSTRUCTIVE PULMONARY DISEASE [None]
  - CONDITION AGGRAVATED [None]
  - CORONARY ARTERY DISEASE [None]
  - HYPERLIPIDAEMIA [None]
  - INSOMNIA [None]
  - LEFT VENTRICULAR DYSFUNCTION [None]
  - LIPOMA [None]
  - LOSS OF CONSCIOUSNESS [None]
  - MITRAL VALVE INCOMPETENCE [None]
  - MYOCARDIAL ISCHAEMIA [None]
  - OSTEOARTHRITIS [None]
  - PERIPHERAL VASCULAR DISORDER [None]
  - PROSTATOMEGALY [None]
  - RENAL CYST [None]
  - RHINITIS ALLERGIC [None]
  - SNORING [None]
